FAERS Safety Report 4553054-6 (Version None)
Quarter: 2005Q1

REPORT INFORMATION
  Report Type: 
  Country: None (occurrence: None)
  Receive Date: 20050114
  Receipt Date: 20050104
  Transmission Date: 20050727
  Serious: Yes (Hospitalization)
  Sender: FDA-Public Use
  Company Number: PHEH2005US00550

PATIENT
  Age: 58 Year
  Sex: Female
  Weight: 97 kg

DRUGS (4)
  1. HYDROCHLOROTHIAZIDE [Concomitant]
  2. ANAGRELIDE HCL [Concomitant]
  3. VITAMIN CAP [Concomitant]
  4. GLEEVEC [Suspect]
     Indication: CHRONIC MYELOID LEUKAEMIA
     Dosage: 400 MG, QD
     Route: 048
     Dates: start: 20040212, end: 20041216

REACTIONS (3)
  - BRONCHOSPASM [None]
  - DYSPNOEA [None]
  - RASH MACULO-PAPULAR [None]
